FAERS Safety Report 19413389 (Version 2)
Quarter: 2025Q4

REPORT INFORMATION
  Report Type: Spontaneous
  Country: EU (occurrence: EU)
  Receive Date: 20210615
  Receipt Date: 20251009
  Transmission Date: 20260118
  Serious: Yes (Hospitalization, Other)
  Sender: AUROBINDO
  Company Number: EU-KRKA-PL2021K07487LIT

PATIENT
  Age: 68 Year
  Sex: Male

DRUGS (2)
  1. CARVEDILOL [Suspect]
     Active Substance: CARVEDILOL
     Indication: Paroxysmal arrhythmia
     Dosage: UNK
     Route: 065
  2. DOXAZOSIN [Concomitant]
     Active Substance: DOXAZOSIN MESYLATE
     Indication: Blood pressure abnormal
     Dosage: 16 MILLIGRAM, ONCE A DAY
     Route: 065

REACTIONS (4)
  - Prostatomegaly [Unknown]
  - Gallbladder disorder [Unknown]
  - Renal cyst [Unknown]
  - Phaeochromocytoma [Unknown]
